FAERS Safety Report 9231789 (Version 2)
Quarter: 2013Q4

REPORT INFORMATION
  Report Type: Spontaneous
  Country: CA (occurrence: CA)
  Receive Date: 20130415
  Receipt Date: 20131016
  Transmission Date: 20140711
  Serious: Yes (Disabling, Other)
  Sender: FDA-Public Use
  Company Number: CA-PFIZER INC-2013094756

PATIENT
  Age: 76 Year
  Sex: Male

DRUGS (7)
  1. VIAGRA [Suspect]
     Indication: ERECTILE DYSFUNCTION
     Dosage: 50 MG, UNK
     Route: 048
     Dates: start: 2006
  2. VIAGRA [Suspect]
     Dosage: 100 MG, SINGLE
     Route: 048
     Dates: start: 20130312, end: 20130312
  3. BISOPROLOL [Concomitant]
     Dosage: 5 MG, UNK
  4. COVERSYL [Concomitant]
     Dosage: 4 MG, UNK
  5. ASPIRIN [Concomitant]
     Dosage: 80 MG, UNK
     Dates: start: 2010
  6. LIPITOR [Concomitant]
     Dosage: 20 MG, UNK
     Dates: start: 201206
  7. CITALOPRAM [Concomitant]
     Dosage: 10 MG, UNK
     Dates: end: 20130301

REACTIONS (2)
  - Deafness [Recovered/Resolved]
  - Middle ear effusion [Recovered/Resolved]
